FAERS Safety Report 14588486 (Version 1)
Quarter: 2018Q1

REPORT INFORMATION
  Report Type: Spontaneous
  Country: GB (occurrence: GB)
  Receive Date: 20180301
  Receipt Date: 20180301
  Transmission Date: 20180509
  Serious: Yes (Hospitalization, Other)
  Sender: FDA-Public Use
  Company Number: GB-GLAXOSMITHKLINE-GB2018GSK031832

PATIENT
  Age: 23 Year
  Sex: Male

DRUGS (1)
  1. VENTOLIN [Suspect]
     Active Substance: ALBUTEROL SULFATE
     Indication: ASTHMA
     Dosage: 200 UG, PRN

REACTIONS (5)
  - Lower respiratory tract infection [Recovering/Resolving]
  - Chest discomfort [Unknown]
  - Asthma [Unknown]
  - Asthenia [Unknown]
  - Product quality issue [Unknown]

NARRATIVE: CASE EVENT DATE: 20180219
